FAERS Safety Report 18518627 (Version 2)
Quarter: 2021Q1

REPORT INFORMATION
  Report Type: Spontaneous
  Country: US (occurrence: US)
  Receive Date: 20201118
  Receipt Date: 20210111
  Transmission Date: 20210419
  Serious: Yes (Hospitalization)
  Sender: FDA-Public Use
  Company Number: US-ALXN-A202016778

PATIENT
  Age: 2 Month

DRUGS (1)
  1. STRENSIQ [Suspect]
     Active Substance: ASFOTASE ALFA
     Indication: HYPOPHOSPHATASIA
     Dosage: 9 MG/KG , QW
     Route: 065

REACTIONS (2)
  - Therapy non-responder [Not Recovered/Not Resolved]
  - Blood alkaline phosphatase abnormal [Not Recovered/Not Resolved]
